FAERS Safety Report 11992986 (Version 1)
Quarter: 2016Q1

REPORT INFORMATION
  Report Type: Spontaneous
  Country: US (occurrence: US)
  Receive Date: 20160203
  Receipt Date: 20160203
  Transmission Date: 20160526
  Serious: No
  Sender: FDA-Public Use
  Company Number: US-UCBSA-2015015380

PATIENT
  Age: 43 Year
  Sex: Female
  Weight: 74.84 kg

DRUGS (4)
  1. DEPAKOTE [Concomitant]
     Active Substance: DIVALPROEX SODIUM
     Dosage: UNK
     Route: 048
  2. KEPPRA [Suspect]
     Active Substance: LEVETIRACETAM
     Dosage: UNK
  3. KEPPRA [Suspect]
     Active Substance: LEVETIRACETAM
     Indication: SEIZURE
     Dosage: 500 MG/2 DAY
  4. TRAMADOL. [Concomitant]
     Active Substance: TRAMADOL
     Indication: PRODUCT USED FOR UNKNOWN INDICATION

REACTIONS (3)
  - Limb discomfort [Recovering/Resolving]
  - Panic attack [Recovering/Resolving]
  - Depression [Recovering/Resolving]

NARRATIVE: CASE EVENT DATE: 201504
